FAERS Safety Report 10222201 (Version 1)
Quarter: 2014Q2

REPORT INFORMATION
  Report Type: Spontaneous
  Country: EC (occurrence: EC)
  Receive Date: 20140606
  Receipt Date: 20140606
  Transmission Date: 20141212
  Serious: Yes (Disabling)
  Sender: FDA-Public Use
  Company Number: EC-JNJFOC-20140600986

PATIENT
  Age: 48 Year
  Sex: Male

DRUGS (2)
  1. XARELTO [Suspect]
     Indication: EMBOLISM VENOUS
     Route: 048
     Dates: start: 201404, end: 201405
  2. XARELTO [Suspect]
     Indication: DEEP VEIN THROMBOSIS
     Route: 048
     Dates: start: 201404, end: 201405

REACTIONS (4)
  - Tooth abscess [Recovering/Resolving]
  - Haematoma [Recovering/Resolving]
  - Ear haemorrhage [Recovering/Resolving]
  - Ecchymosis [Recovered/Resolved]
